FAERS Safety Report 6784320-1 (Version None)
Quarter: 2010Q2

REPORT INFORMATION
  Report Type: 
  Country: None (occurrence: None)
  Receive Date: 20100617
  Receipt Date: 20100610
  Transmission Date: 20101027
  Serious: Yes (Other)
  Sender: FDA-Public Use
  Company Number: URSO-2010-021

PATIENT
  Age: 49 Year
  Sex: Female

DRUGS (1)
  1. URSODIOL [Suspect]
     Dosage: 600 MG, ORAL
     Route: 048
     Dates: start: 20081118, end: 20100113

REACTIONS (3)
  - ALANINE AMINOTRANSFERASE INCREASED [None]
  - ASPARTATE AMINOTRANSFERASE INCREASED [None]
  - THYROIDITIS SUBACUTE [None]
